FAERS Safety Report 14377763 (Version 2)
Quarter: 2018Q1

REPORT INFORMATION
  Report Type: Spontaneous
  Country: US (occurrence: US)
  Receive Date: 20180111
  Receipt Date: 20180126
  Transmission Date: 20180509
  Serious: No
  Sender: FDA-Public Use
  Company Number: US-009507513-1712USA008622

PATIENT
  Age: 23 Year
  Sex: Female
  Weight: 48.07 kg

DRUGS (2)
  1. NEXPLANON [Suspect]
     Active Substance: ETONOGESTREL
     Dosage: 1 DF, UNK
     Route: 059
     Dates: end: 20171205
  2. NEXPLANON [Suspect]
     Active Substance: ETONOGESTREL
     Dosage: 1 DF, UNK
     Route: 030
     Dates: start: 20171205, end: 20171214

REACTIONS (5)
  - Pain in extremity [Recovered/Resolved]
  - Pain [Recovered/Resolved]
  - Surgery [Unknown]
  - Complication of device removal [Recovered/Resolved]
  - Device deployment issue [Recovered/Resolved]

NARRATIVE: CASE EVENT DATE: 201712
